FAERS Safety Report 13389413 (Version 1)
Quarter: 2017Q1

REPORT INFORMATION
  Report Type: Spontaneous
  Country: GB (occurrence: GB)
  Receive Date: 20170330
  Receipt Date: 20170330
  Transmission Date: 20170429
  Serious: Yes (Life-Threatening, Other)
  Sender: FDA-Public Use
  Company Number: GB-SEATTLE GENETICS-2017SGN00703

PATIENT

DRUGS (2)
  1. ADCETRIS [Suspect]
     Active Substance: BRENTUXIMAB VEDOTIN
     Dosage: 1.2 MG/KG, UNK
     Route: 065
     Dates: start: 20170301
  2. ADCETRIS [Suspect]
     Active Substance: BRENTUXIMAB VEDOTIN
     Indication: PRODUCT USED FOR UNKNOWN INDICATION
     Dosage: 1.8 MG/KG, UNK
     Route: 065
     Dates: start: 20170206

REACTIONS (7)
  - Anaphylactic reaction [Unknown]
  - Infusion related reaction [Unknown]
  - Peripheral swelling [Unknown]
  - Flushing [Unknown]
  - Blood pressure abnormal [Unknown]
  - Neurotoxicity [Unknown]
  - Chest discomfort [Unknown]

NARRATIVE: CASE EVENT DATE: 20170301
